FAERS Safety Report 16013806 (Version 1)
Quarter: 2019Q1

REPORT INFORMATION
  Report Type: Spontaneous
  Country: US (occurrence: US)
  Receive Date: 20190131
  Receipt Date: 20190131
  Transmission Date: 20190418
  Serious: Yes (Hospitalization)
  Sender: FDA-Public Use
  Company Number: None

PATIENT
  Age: 66 Year
  Sex: Female
  Weight: 90.72 kg

DRUGS (19)
  1. DOCUSATE [Concomitant]
     Active Substance: DOCUSATE
  2. LOTRIMIN [Concomitant]
     Active Substance: CLOTRIMAZOLE
  3. SIMVASTATIN. [Concomitant]
     Active Substance: SIMVASTATIN
  4. METOPROLOL. [Concomitant]
     Active Substance: METOPROLOL
  5. LORATADINE. [Concomitant]
     Active Substance: LORATADINE
  6. ZANTAC [Concomitant]
     Active Substance: RANITIDINE HYDROCHLORIDE
  7. BCLOFEN, [Concomitant]
  8. VENTOLIN, T [Concomitant]
  9. FENTANYL. [Concomitant]
     Active Substance: FENTANYL
  10. XGEVA [Suspect]
     Active Substance: DENOSUMAB
     Indication: METASTATIC NEOPLASM
     Dosage: ?          OTHER FREQUENCY:EVERY 8 WEEKS;?
     Route: 058
     Dates: start: 20150731
  11. MELATONIN [Concomitant]
     Active Substance: MELATONIN
  12. TOBRAMYCIN. [Concomitant]
     Active Substance: TOBRAMYCIN
  13. FEMARA [Concomitant]
     Active Substance: LETROZOLE
  14. SERTRALINE [Concomitant]
     Active Substance: SERTRALINE HYDROCHLORIDE
  15. SEROQUEL [Concomitant]
     Active Substance: QUETIAPINE FUMARATE
  16. KETOCONAZOLE. [Concomitant]
     Active Substance: KETOCONAZOLE
  17. KLONOPIN [Concomitant]
     Active Substance: CLONAZEPAM
  18. BOTOX [Concomitant]
     Active Substance: ONABOTULINUMTOXINA
  19. PROMIDONE [Concomitant]
     Active Substance: PRIMIDONE

REACTIONS (2)
  - Pneumonia [None]
  - Infection [None]
